FAERS Safety Report 5578563-2 (Version None)
Quarter: 2007Q4

REPORT INFORMATION
  Report Type: 
  Country: None (occurrence: None)
  Receive Date: 20071231
  Receipt Date: 20071221
  Transmission Date: 20080405
  Serious: Yes (Life-Threatening, Hospitalization, Other)
  Sender: FDA-Public Use
  Company Number: GB-PFIZER INC-2007107617

PATIENT
  Age: 50 Year
  Sex: Male

DRUGS (2)
  1. SOMAVERT [Suspect]
     Route: 058
     Dates: start: 20071108, end: 20071130
  2. TESTOSTERONE [Concomitant]
     Dosage: DAILY DOSE:50MG-FREQ:DAILY
     Route: 061

REACTIONS (2)
  - CHOLELITHIASIS [None]
  - PANCREATITIS ACUTE [None]
